FAERS Safety Report 9452491 (Version 2)
Quarter: 2019Q1

REPORT INFORMATION
  Report Type: Report from Study
  Country: US (occurrence: US)
  Receive Date: 20130812
  Receipt Date: 20190128
  Transmission Date: 20190418
  Serious: Yes (Hospitalization, Other)
  Sender: FDA-Public Use
  Company Number: US-SANOFI-AVENTIS-2013SA080011

PATIENT
  Age: 53 Year
  Sex: Female

DRUGS (2)
  1. INSULIN GLARGINE [Suspect]
     Active Substance: INSULIN GLARGINE
     Dosage: 70 U, QD
     Route: 058
     Dates: start: 200911
  2. INSULIN GLARGINE [Suspect]
     Active Substance: INSULIN GLARGINE
     Indication: TYPE 2 DIABETES MELLITUS
     Dosage: 80 U, QD
     Route: 058
     Dates: start: 2009

REACTIONS (22)
  - Staphylococcal infection [Recovered/Resolved]
  - Septic shock [Recovered/Resolved]
  - Limb operation [Unknown]
  - Foot operation [Unknown]
  - Gait disturbance [Not Recovered/Not Resolved]
  - Arthritis [Not Recovered/Not Resolved]
  - Limb operation [Unknown]
  - Diabetic foot [Not Recovered/Not Resolved]
  - Product dose omission [Unknown]
  - Gait inability [Recovered/Resolved]
  - Disability [Recovered/Resolved]
  - Ankle arthroplasty [Unknown]
  - Pain [Recovered/Resolved]
  - Decubitus ulcer [Recovered/Resolved]
  - Limb operation [Unknown]
  - Gangrene [Recovered/Resolved]
  - Ankle fracture [Recovered/Resolved]
  - Thermal burn [Recovered/Resolved]
  - Impaired work ability [Not Recovered/Not Resolved]
  - Lower limb fracture [Not Recovered/Not Resolved]
  - Toe amputation [Unknown]
  - Stress fracture [Recovered/Resolved]

NARRATIVE: CASE EVENT DATE: 201206
